FAERS Safety Report 10373277 (Version 3)
Quarter: 2014Q4

REPORT INFORMATION
  Report Type: Spontaneous
  Country: US (occurrence: US)
  Receive Date: 20140808
  Receipt Date: 20141205
  Transmission Date: 20150528
  Serious: No
  Sender: FDA-Public Use
  Company Number: US-BRISTOL-MYERS SQUIBB COMPANY-20381372

PATIENT
  Age: 75 Year
  Sex: Female

DRUGS (1)
  1. SPRYCEL [Suspect]
     Active Substance: DASATINIB
     Indication: CHRONIC MYELOID LEUKAEMIA
     Dosage: 25JAN2014
     Route: 048
     Dates: start: 201312

REACTIONS (5)
  - Epigastric discomfort [Unknown]
  - Respiratory tract congestion [Unknown]
  - Diarrhoea [Unknown]
  - Sinus congestion [Unknown]
  - Dyspepsia [Unknown]
